FAERS Safety Report 10700676 (Version 1)
Quarter: 2014Q4

REPORT INFORMATION
  Report Type: Spontaneous
  Country: US (occurrence: None)
  Receive Date: 20141224
  Receipt Date: 20141224
  Transmission Date: 20150529
  Serious: Yes (Other)
  Sender: FDA-Public Use
  Company Number: PHEH2014US010981

PATIENT
  Age: 59 Year
  Sex: Female
  Weight: 73.9 kg

DRUGS (6)
  1. WARFARIN (WARFARIN) [Concomitant]
     Active Substance: WARFARIN
  2. POTASSIUM CHLORIDE (POTASSIUM CHLORIDE) [Concomitant]
     Active Substance: POTASSIUM CHLORIDE
  3. COUMADIN [Concomitant]
     Active Substance: WARFARIN SODIUM
  4. DIOVAN [Concomitant]
     Active Substance: VALSARTAN
  5. CLONAZEPAM. [Concomitant]
     Active Substance: CLONAZEPAM
  6. FEMARA [Suspect]
     Active Substance: LETROZOLE
     Indication: BREAST CANCER
     Dosage: UNK

REACTIONS (4)
  - Arthralgia [None]
  - Diarrhoea [None]
  - Bone pain [None]
  - Appetite disorder [None]
